FAERS Safety Report 5663871-7 (Version None)
Quarter: 2008Q1

REPORT INFORMATION
  Report Type: 
  Country: None (occurrence: None)
  Receive Date: 20080314
  Receipt Date: 20080305
  Transmission Date: 20080703
  Serious: Yes (Other)
  Sender: FDA-Public Use
  Company Number: GB-TEVA-168444ISR

PATIENT
  Sex: Female

DRUGS (5)
  1. GABAPENTIN [Suspect]
  2. TRAMADOL HCL [Interacting]
  3. HYPERICUM PERFORATUM EXTRACT [Interacting]
  4. PETHIDINE [Interacting]
     Route: 042
  5. PARACETAMOL [Interacting]
     Route: 042

REACTIONS (2)
  - DRUG INTERACTION [None]
  - SEROTONIN SYNDROME [None]
